FAERS Safety Report 11335395 (Version 1)
Quarter: 2015Q3

REPORT INFORMATION
  Report Type: Spontaneous
  Country: US (occurrence: US)
  Receive Date: 20150804
  Receipt Date: 20150804
  Transmission Date: 20151125
  Serious: No
  Sender: FDA-Public Use
  Company Number: US-AMGEN-USASP2015075366

PATIENT
  Age: 62 Year
  Sex: Female

DRUGS (2)
  1. METHOTREXATE [Concomitant]
     Active Substance: METHOTREXATE
     Dosage: UNK
  2. ENBREL [Suspect]
     Active Substance: ETANERCEPT
     Indication: RHEUMATOID ARTHRITIS
     Dosage: 50 MG, QWK (ONCE A WEEK)
     Route: 065

REACTIONS (6)
  - Contusion [Unknown]
  - Injection site erythema [Unknown]
  - Arthropod bite [Unknown]
  - Injection site bruising [Unknown]
  - Pruritus [Unknown]
  - Joint swelling [Recovered/Resolved]
